FAERS Safety Report 25825573 (Version 3)
Quarter: 2025Q4

REPORT INFORMATION
  Report Type: Spontaneous
  Country: EU (occurrence: EU)
  Receive Date: 20250919
  Receipt Date: 20251229
  Transmission Date: 20260118
  Serious: Yes (Other)
  Sender: ELI LILLY AND COMPANY
  Company Number: EU-ELI_LILLY_AND_COMPANY-PT202509009598

PATIENT
  Age: 50 Year
  Sex: Female

DRUGS (2)
  1. MOUNJARO [Suspect]
     Active Substance: TIRZEPATIDE
     Indication: Weight control
     Dosage: 20 MG IN ONE DAY AND THEN ANOTHER 20 MG AFTER 3 DAYS
     Route: 058
     Dates: start: 20250710, end: 20250715
  2. MOUNJARO [Suspect]
     Active Substance: TIRZEPATIDE
     Indication: Weight control

REACTIONS (6)
  - Drug-induced liver injury [Recovered/Resolved]
  - Hepatitis fulminant [Recovered/Resolved]
  - Hypotension [Unknown]
  - Intentional overdose [Unknown]
  - Intentional overdose [Unknown]
  - Product use issue [Unknown]

NARRATIVE: CASE EVENT DATE: 20250710
